FAERS Safety Report 7439663-5 (Version None)
Quarter: 2011Q2

REPORT INFORMATION
  Report Type: 
  Country: None (occurrence: None)
  Receive Date: 20110427
  Receipt Date: 20110413
  Transmission Date: 20111010
  Serious: Yes (Hospitalization)
  Sender: FDA-Public Use
  Company Number: PHHY2010FI38824

PATIENT
  Age: 52 Year
  Sex: Male

DRUGS (7)
  1. LEPONEX [Suspect]
     Dosage: 200 MG, UNK
  2. DIGOXIN [Concomitant]
     Indication: ATRIAL FIBRILLATION
  3. MAREVAN [Concomitant]
     Indication: ATRIAL FIBRILLATION
  4. LEPONEX [Suspect]
  5. LEPONEX [Suspect]
     Indication: SCHIZOPHRENIA
     Dosage: 100 MG, UNK
  6. LEPONEX [Suspect]
     Dosage: 200 MG, UNK
  7. EMCONCOR [Concomitant]
     Indication: ATRIAL FIBRILLATION

REACTIONS (6)
  - ELECTROCARDIOGRAM ST SEGMENT DEPRESSION [None]
  - ATRIAL FIBRILLATION [None]
  - PSYCHOSOMATIC DISEASE [None]
  - HEART RATE INCREASED [None]
  - HYPERTROPHIC CARDIOMYOPATHY [None]
  - IMPULSE-CONTROL DISORDER [None]
